FAERS Safety Report 5080940-3 (Version None)
Quarter: 2006Q3

REPORT INFORMATION
  Report Type: 
  Country: None (occurrence: None)
  Receive Date: 20060811
  Receipt Date: 20060727
  Transmission Date: 20061208
  Serious: Yes (Death, Hospitalization)
  Sender: FDA-Public Use
  Company Number: 163-20785-06080149

PATIENT
  Sex: Male

DRUGS (4)
  1. THALOMID [Suspect]
     Indication: PROSTATE CANCER
     Dosage: 200 MG, 1 IN 1 D, ORAL
     Route: 048
     Dates: start: 20060526
  2. PROCRIT [Concomitant]
  3. VIDAZA [Concomitant]
  4. LUPRON [Concomitant]

REACTIONS (5)
  - ACUTE LEUKAEMIA [None]
  - ASTHENIA [None]
  - MALIGNANT NEOPLASM PROGRESSION [None]
  - PROSTATE CANCER [None]
  - THROMBOCYTOPENIA [None]
